FAERS Safety Report 18336465 (Version 3)
Quarter: 2020Q4

REPORT INFORMATION
  Report Type: Report from Study
  Country: US (occurrence: US)
  Receive Date: 20201001
  Receipt Date: 20201110
  Transmission Date: 20210113
  Serious: No
  Sender: FDA-Public Use
  Company Number: NVSC2020US266619

PATIENT
  Sex: Female

DRUGS (1)
  1. COSENTYX [Suspect]
     Active Substance: SECUKINUMAB
     Indication: RASH PAPULOSQUAMOUS
     Dosage: 300 MG, QW
     Route: 042
     Dates: start: 20200902

REACTIONS (2)
  - Injection site pain [Unknown]
  - Product use in unapproved indication [Unknown]
